FAERS Safety Report 19728188 (Version 1)
Quarter: 2021Q3

REPORT INFORMATION
  Report Type: Spontaneous
  Country: DE (occurrence: DE)
  Receive Date: 20210820
  Receipt Date: 20210820
  Transmission Date: 20211014
  Serious: Yes (Other)
  Sender: FDA-Public Use
  Company Number: DE-009507513-2108DEU005138

PATIENT
  Age: 30 Year
  Sex: Male

DRUGS (3)
  1. METAMIZOL SODIUM [Concomitant]
     Active Substance: METAMIZOL SODIUM
  2. PEMBROLIZUMAB. [Suspect]
     Active Substance: PEMBROLIZUMAB
     Dosage: UNK
     Dates: start: 2019, end: 202006
  3. CELECOXIB. [Concomitant]
     Active Substance: CELECOXIB

REACTIONS (3)
  - Immune-mediated arthritis [Not Recovered/Not Resolved]
  - Oligoasthenoteratozoospermia [Unknown]
  - Infertility male [Unknown]

NARRATIVE: CASE EVENT DATE: 2019
